FAERS Safety Report 8654698 (Version 6)
Quarter: 2013Q1

REPORT INFORMATION
  Report Type: Spontaneous
  Country: US (occurrence: US)
  Receive Date: 20120626
  Receipt Date: 20130329
  Transmission Date: 20140127
  Serious: Yes (Hospitalization, Disabling, Other)
  Sender: FDA-Public Use
  Company Number: US-009507513-2012SP032813

PATIENT
  Sex: Female
  Weight: 114.97 kg

DRUGS (6)
  1. VICTRELIS [Suspect]
     Indication: HEPATITIS C
     Dosage: UNK
     Dates: start: 20111120
  2. VICTRELIS [Suspect]
     Dosage: 800 MG, TID
     Route: 048
     Dates: start: 20120504
  3. VICTRELIS [Suspect]
     Dosage: 800 MG, TID
     Route: 048
     Dates: start: 20120529
  4. RIBASPHERE [Suspect]
     Indication: HEPATITIS C
     Dosage: UNK
  5. PEGASYS [Suspect]
     Indication: HEPATITIS C
     Dosage: UNK
  6. LORAZEPAM [Concomitant]

REACTIONS (12)
  - Chest pain [Unknown]
  - Nausea [Unknown]
  - Fatigue [Unknown]
  - Abscess [Unknown]
  - Anxiety [Unknown]
  - Dyspnoea [Unknown]
  - Leukopenia [Unknown]
  - Injection site irritation [Unknown]
  - Injection site pruritus [Unknown]
  - Injection site rash [Unknown]
  - Abdominal pain upper [Unknown]
  - Decreased appetite [Unknown]
